FAERS Safety Report 5612875-9 (Version None)
Quarter: 2008Q1

REPORT INFORMATION
  Report Type: 
  Country: None (occurrence: None)
  Receive Date: 20080128
  Receipt Date: 20080115
  Transmission Date: 20080703
  Serious: No
  Sender: FDA-Public Use
  Company Number: 8029329

PATIENT
  Age: 8 Year
  Sex: Male
  Weight: 30 kg

DRUGS (2)
  1. EQUASYM [Suspect]
     Indication: ATTENTION DEFICIT/HYPERACTIVITY DISORDER
     Dosage: 10 MG 1/D
     Dates: start: 20070302, end: 20070314
  2. EQUASYM [Suspect]
     Indication: ATTENTION DEFICIT/HYPERACTIVITY DISORDER
     Dosage: 20 MG 1/D
     Dates: start: 20070315

REACTIONS (9)
  - ANXIETY [None]
  - CRYING [None]
  - DECREASED APPETITE [None]
  - FATIGUE [None]
  - HYPOTONIA [None]
  - MUSCLE TWITCHING [None]
  - ONYCHOPHAGIA [None]
  - SLEEP DISORDER [None]
  - TIC [None]
